FAERS Safety Report 8797841 (Version 1)
Quarter: 2012Q4

REPORT INFORMATION
  Report Type: Spontaneous
  Country: US (occurrence: None)
  Receive Date: 20120914
  Receipt Date: 20120914
  Transmission Date: 20130627
  Serious: Yes (Death)
  Sender: FDA-Public Use
  Company Number: INT_00120_2012

PATIENT
  Age: 65 Year
  Sex: Female

DRUGS (6)
  1. CEFAZOLIN [Suspect]
     Indication: ANTIBIOTIC PROPHYLAXIS
     Route: 042
     Dates: end: 20120815
  2. CEFAZOLIN [Suspect]
     Indication: ANTIBIOTIC PROPHYLAXIS
  3. VANCOMYCIN [Concomitant]
  4. TORADOL [Concomitant]
  5. CIPRO [Concomitant]
  6. CEFTRIAXON [Concomitant]

REACTIONS (3)
  - Cardio-respiratory arrest [None]
  - Brain injury [None]
  - Anaphylactic shock [None]
